FAERS Safety Report 9432329 (Version 2)
Quarter: 2013Q4

REPORT INFORMATION
  Report Type: Spontaneous
  Country: JP (occurrence: JP)
  Receive Date: 20130731
  Receipt Date: 20131106
  Transmission Date: 20140711
  Serious: Yes (Hospitalization)
  Sender: FDA-Public Use
  Company Number: JP-009507513-1307JPN016286

PATIENT
  Age: 16 Year
  Sex: Female
  Weight: 52 kg

DRUGS (3)
  1. MARVELON [Suspect]
     Dosage: DAILY DOSAGE UNKNOWN
     Route: 048
     Dates: start: 20120705, end: 20130612
  2. LOXONIN [Suspect]
     Indication: DYSMENORRHOEA
     Dosage: UNK
     Dates: end: 20130804
  3. SELBEX [Concomitant]
     Dosage: UNK

REACTIONS (1)
  - Hepatic function abnormal [Recovering/Resolving]
